FAERS Safety Report 7640734-9 (Version None)
Quarter: 2011Q3

REPORT INFORMATION
  Report Type: 
  Country: None (occurrence: None)
  Receive Date: 20110721
  Receipt Date: 20110707
  Transmission Date: 20111222
  Serious: Yes (Hospitalization)
  Sender: FDA-Public Use
  Company Number: KV2008000728

PATIENT
  Age: 52 Year
  Sex: Female
  Weight: 105.7 kg

DRUGS (25)
  1. VARENICLINE (VARENICLINE) [Concomitant]
  2. PLAVIX [Concomitant]
  3. LIDOCAINE [Concomitant]
  4. MORPHINE SULFATE [Suspect]
     Indication: PAIN
     Dosage: 1-2 TABLETS, Q6-8 HRS, ORAL
     Route: 048
     Dates: start: 20080818, end: 20080827
  5. ZOCOR [Concomitant]
  6. NAPROSYN /00256201/ (NAPROXEN) [Concomitant]
  7. HYDROCODONE BITARTRATE AND ACETAMINOPHEN (HYDROCODONE BITARTRATE, PARA [Concomitant]
  8. CYCLOBENZAPRINE [Concomitant]
  9. NEURONTIN [Concomitant]
  10. ONDANSETRON [Concomitant]
  11. COMBIVENT /01033501/ (IPRATROPIUM BROMIDE, SALBUTAMOL) [Concomitant]
  12. SENOKOT /00142201/ (SENNA ALEXANDRINA) [Concomitant]
  13. PROCHLORPERAZINE MALEATE [Concomitant]
  14. DIAZEPAM [Concomitant]
  15. PREDNISONE [Concomitant]
  16. MORPHINE SULDATE [Suspect]
     Indication: BACK PAIN
     Dosage: 60 MG, BID ,ORAL ; 60 MG, BID, ORAL
     Route: 048
     Dates: start: 20080423, end: 20080501
  17. MORPHINE SULFATE [Suspect]
     Indication: PAIN
     Dosage: ORAL
     Route: 048
     Dates: start: 20080923
  18. MILK OF MAGNESIA TAB [Concomitant]
  19. ALPRAZOLAM [Concomitant]
  20. ESTRATEST [Concomitant]
  21. COLACE (DOCUSATE SODIUM) [Concomitant]
  22. CLINDAMYCIN [Concomitant]
  23. PAXIL [Concomitant]
  24. PERCOCET /00446701/ (OXYCODONE HYDROCHLORIDE, OXYCODONE TEREPHTHALAATE [Concomitant]
  25. ALBUTEROL [Concomitant]

REACTIONS (28)
  - OEDEMA PERIPHERAL [None]
  - PALLOR [None]
  - ASTHENIA [None]
  - HYPOXIA [None]
  - HEADACHE [None]
  - MALAISE [None]
  - NAUSEA [None]
  - DECREASED APPETITE [None]
  - CHEST PAIN [None]
  - URINARY TRACT INFECTION [None]
  - INSOMNIA [None]
  - LUNG NEOPLASM MALIGNANT [None]
  - PARANEOPLASTIC SYNDROME [None]
  - INTERMITTENT CLAUDICATION [None]
  - POLYURIA [None]
  - DYSPNOEA EXERTIONAL [None]
  - WEIGHT DECREASED [None]
  - FATIGUE [None]
  - PALPITATIONS [None]
  - COUGH [None]
  - OVERDOSE [None]
  - HYPOTENSION [None]
  - PARAESTHESIA [None]
  - VOMITING [None]
  - HAEMOPTYSIS [None]
  - ARTHRALGIA [None]
  - ANXIETY [None]
  - PAIN IN EXTREMITY [None]
